FAERS Safety Report 11403076 (Version 1)
Quarter: 2015Q3

REPORT INFORMATION
  Report Type: Spontaneous
  Country: US (occurrence: US)
  Receive Date: 20150821
  Receipt Date: 20150821
  Transmission Date: 20151125
  Serious: Yes (Hospitalization)
  Sender: FDA-Public Use
  Company Number: US-ROCHE-1060851

PATIENT
  Age: 47 Year
  Sex: Male

DRUGS (6)
  1. COPEGUS [Suspect]
     Active Substance: RIBAVIRIN
     Indication: CHRONIC HEPATITIS C
     Dosage: THERAPY SUSPENDED FOR ONE MONTH
     Route: 048
     Dates: start: 20120417
  2. IBUPROFEN. [Concomitant]
     Active Substance: IBUPROFEN
  3. COPEGUS [Suspect]
     Active Substance: RIBAVIRIN
     Dosage: DOSE WAS EVENTUALLY INCREASED BACK TO 1200 MG
     Route: 048
  4. PEGINTRON [Suspect]
     Active Substance: PEGINTERFERON ALFA-2B
     Indication: CHRONIC HEPATITIS C
     Route: 065
     Dates: start: 20120417
  5. PEGASYS [Suspect]
     Active Substance: PEGINTERFERON ALFA-2A
     Indication: CHRONIC HEPATITIS C
     Route: 058
     Dates: start: 201208
  6. COPEGUS [Suspect]
     Active Substance: RIBAVIRIN
     Dosage: THERAPY REDUCED TO 400 MG
     Route: 048

REACTIONS (13)
  - Drug ineffective [Unknown]
  - Haematochezia [Unknown]
  - White blood cell count decreased [Unknown]
  - Anaemia [Unknown]
  - Myalgia [Unknown]
  - Peripheral swelling [Unknown]
  - Arthralgia [Unknown]
  - Blood potassium decreased [Unknown]
  - Blood glucose increased [Unknown]
  - Neutropenia [Unknown]
  - Chills [Unknown]
  - Pyrexia [Unknown]
  - Red blood cell count decreased [Unknown]

NARRATIVE: CASE EVENT DATE: 201207
